FAERS Safety Report 8379328-9 (Version None)
Quarter: 2012Q2

REPORT INFORMATION
  Report Type: 
  Country: None (occurrence: None)
  Receive Date: 20120523
  Receipt Date: 20120517
  Transmission Date: 20120825
  Serious: Yes (Other)
  Sender: FDA-Public Use
  Company Number: PHHY2012CZ038034

PATIENT
  Sex: Female

DRUGS (4)
  1. NSAID'S [Concomitant]
  2. IBANDRONATE SODIUM [Concomitant]
     Dosage: 50 MG, UNK
     Dates: start: 20080402, end: 20110618
  3. BONEFOS [Concomitant]
     Dosage: 200 MG, UNK
     Dates: start: 20071015, end: 20071210
  4. ZOMETA [Suspect]
     Indication: METASTASES TO BONE
     Dosage: 4 MG, TIW
     Dates: start: 20071005

REACTIONS (11)
  - BONE PAIN [None]
  - DRY MOUTH [None]
  - OSTEOMYELITIS [None]
  - DYSPHAGIA [None]
  - ORAL DISORDER [None]
  - OSTEONECROSIS OF JAW [None]
  - DYSGEUSIA [None]
  - SOFT TISSUE INFECTION [None]
  - MALAISE [None]
  - MOUTH HAEMORRHAGE [None]
  - PAIN [None]
